FAERS Safety Report 10233854 (Version 2)
Quarter: 2014Q2

REPORT INFORMATION
  Report Type: Spontaneous
  Country: PL (occurrence: PL)
  Receive Date: 20140612
  Receipt Date: 20140626
  Transmission Date: 20141212
  Serious: Yes (Death, Other)
  Sender: FDA-Public Use
  Company Number: PL-BAXTER-2014BAX029742

PATIENT
  Age: 53 Year
  Sex: Male

DRUGS (5)
  1. SODU CHLOREK 0.9% BAXTER [Suspect]
     Indication: PRODUCT USED FOR UNKNOWN INDICATION
     Dosage: 3-4 L/24 HOURS
     Route: 042
  2. FUROSEMIDE [Suspect]
     Indication: PRODUCT USED FOR UNKNOWN INDICATION
     Dosage: 20-80 MG/24 HOURS
     Route: 065
  3. HYDROCORTISONE [Suspect]
     Indication: PRODUCT USED FOR UNKNOWN INDICATION
     Dosage: 100-300 MG/24 HOURS
     Route: 065
  4. PAMIDRONATE [Suspect]
     Indication: HYPERCALCAEMIA
     Route: 042
  5. CALCITONIN [Suspect]
     Indication: PRODUCT USED FOR UNKNOWN INDICATION
     Dosage: 100 U 2-4 TIMES PER 24 HOURS
     Route: 058

REACTIONS (2)
  - Drug ineffective [Unknown]
  - Hypercalcaemia of malignancy [Fatal]
